FAERS Safety Report 13305429 (Version 1)
Quarter: 2017Q1

REPORT INFORMATION
  Report Type: Spontaneous
  Country: US (occurrence: US)
  Receive Date: 20170308
  Receipt Date: 20170308
  Transmission Date: 20170428
  Serious: No
  Sender: FDA-Public Use
  Company Number: US-BAUSCH-BL-2016-022329

PATIENT

DRUGS (3)
  1. UCERIS [Suspect]
     Active Substance: BUDESONIDE
     Indication: COLITIS
  2. UCERIS [Suspect]
     Active Substance: BUDESONIDE
     Indication: GASTROINTESTINAL INFLAMMATION
  3. UCERIS [Suspect]
     Active Substance: BUDESONIDE
     Indication: DIARRHOEA
     Route: 065

REACTIONS (1)
  - Off label use [Unknown]
